FAERS Safety Report 7708863-9 (Version None)
Quarter: 2011Q3

REPORT INFORMATION
  Report Type: 
  Country: None (occurrence: None)
  Receive Date: 20110819
  Receipt Date: 20110805
  Transmission Date: 20111222
  Serious: Yes (Hospitalization)
  Sender: FDA-Public Use
  Company Number: 2011-00619

PATIENT
  Age: 57 Year
  Sex: Male

DRUGS (14)
  1. NAFTIDROFURYL OXALATE [Concomitant]
  2. AMLODIPINE [Concomitant]
  3. NICORANDIL [Concomitant]
  4. TRIMETHOPRIM [Suspect]
     Indication: URINARY TRACT INFECTION
     Dosage: 200 MG (200 MG,UNK),ORAL
     Route: 048
     Dates: start: 20110520, end: 20110522
  5. NITROGLYCERIN [Concomitant]
  6. ISOSORBIDE MONONITRATE [Concomitant]
  7. SIMVASTATIN [Suspect]
     Indication: HYPERCHOLESTEROLAEMIA
     Dosage: 40 MG (40 MG, UNK),ORAL
     Route: 048
     Dates: start: 20060724, end: 20110522
  8. CARVEDILOL [Concomitant]
  9. RAMIPRIL [Concomitant]
  10. ACETAMINOPHEN [Concomitant]
  11. RANEXA [Suspect]
     Indication: ANGINA PECTORIS
     Dosage: 1000 MG (500 MG,2 IN 1 D),ORAL : 750 MG (375 MG,2 IN 1 D),ORAL
     Route: 048
     Dates: start: 20110506, end: 20110522
  12. RANEXA [Suspect]
     Indication: ANGINA PECTORIS
     Dosage: 1000 MG (500 MG,2 IN 1 D),ORAL : 750 MG (375 MG,2 IN 1 D),ORAL
     Route: 048
     Dates: start: 20110407, end: 20110505
  13. ASPIRIN [Concomitant]
  14. ENOXAPARIN [Concomitant]

REACTIONS (3)
  - RHABDOMYOLYSIS [None]
  - DRUG INTERACTION [None]
  - MALAISE [None]
